FAERS Safety Report 13519098 (Version 2)
Quarter: 2017Q2

REPORT INFORMATION
  Report Type: Spontaneous
  Country: US (occurrence: US)
  Receive Date: 20170505
  Receipt Date: 20170505
  Transmission Date: 20170830
  Serious: Yes (Other)
  Sender: FDA-Public Use
  Company Number: US-BAXALTA-2017BLT003728

PATIENT
  Age: 53 Year
  Sex: Female

DRUGS (3)
  1. HYQVIA [Suspect]
     Active Substance: HUMAN IMMUNOGLOBULIN G\HYALURONIDASE RECOMBINANT HUMAN
     Indication: IMMUNODEFICIENCY COMMON VARIABLE
     Dosage: UNK
     Route: 065
     Dates: start: 201610
  2. HYQVIA [Suspect]
     Active Substance: HUMAN IMMUNOGLOBULIN G\HYALURONIDASE RECOMBINANT HUMAN
     Indication: HYPOGAMMAGLOBULINAEMIA
     Dosage: UNK
     Route: 065
     Dates: start: 20170420
  3. GAMUNEX [Suspect]
     Active Substance: HUMAN IMMUNOGLOBULIN G
     Indication: HYPOGAMMAGLOBULINAEMIA
     Dosage: UNK
     Route: 065
     Dates: end: 201610

REACTIONS (19)
  - Skin exfoliation [Unknown]
  - Headache [Unknown]
  - Carotid artery stenosis [Unknown]
  - Pain in extremity [Unknown]
  - Malaise [Unknown]
  - Unevaluable event [Unknown]
  - Paraesthesia [Unknown]
  - Alopecia [Unknown]
  - Lymph node pain [Unknown]
  - Petechiae [Unknown]
  - Nail hypertrophy [Unknown]
  - Abdominal pain [Unknown]
  - Abdominal distension [Unknown]
  - Venous thrombosis [Unknown]
  - Asthenia [Unknown]
  - Dysphonia [Unknown]
  - Transient ischaemic attack [Unknown]
  - Hypertension [Unknown]
  - Gait disturbance [Unknown]

NARRATIVE: CASE EVENT DATE: 201702
